FAERS Safety Report 15836431 (Version 1)
Quarter: 2018Q4

REPORT INFORMATION
  Report Type: Spontaneous
  Country: US (occurrence: US)
  Receive Date: 20181220
  Receipt Date: 20181220
  Transmission Date: 20190205
  Serious: No
  Sender: FDA-Public Use
  Company Number: None

PATIENT
  Age: 60 Year
  Sex: Female

DRUGS (1)
  1. BENLYSTA [Suspect]
     Active Substance: BELIMUMAB
     Dates: start: 201807

REACTIONS (7)
  - Scratch [None]
  - Rash pruritic [None]
  - Rash erythematous [None]
  - Wound [None]
  - Skin mass [None]
  - Product availability issue [None]
  - Insurance issue [None]

NARRATIVE: CASE EVENT DATE: 20181008
